FAERS Safety Report 6770403-9 (Version None)
Quarter: 2010Q2

REPORT INFORMATION
  Report Type: 
  Country: None (occurrence: None)
  Receive Date: 20100615
  Receipt Date: 20100603
  Transmission Date: 20101027
  Serious: Yes (Other)
  Sender: FDA-Public Use
  Company Number: CA-PFIZER INC-2010070308

PATIENT

DRUGS (1)
  1. ZELDOX [Suspect]
     Dosage: 80 MG, 2X/DAY

REACTIONS (1)
  - SEDATION [None]
